FAERS Safety Report 14523727 (Version 1)
Quarter: 2018Q1

REPORT INFORMATION
  Report Type: Report from Study
  Country: None (occurrence: US)
  Receive Date: 20180213
  Receipt Date: 20180213
  Transmission Date: 20180509
  Serious: Yes (Hospitalization, Other)
  Sender: FDA-Public Use
  Company Number: US-ABBVIE-18K-163-2227854-00

PATIENT
  Age: 40 Year
  Sex: Male
  Weight: 157.99 kg

DRUGS (1)
  1. HUMIRA [Suspect]
     Active Substance: ADALIMUMAB
     Indication: HIDRADENITIS
     Route: 058
     Dates: start: 20170321, end: 201712

REACTIONS (3)
  - Anaemia [Recovering/Resolving]
  - Post procedural infection [Recovering/Resolving]
  - Hidradenitis [Recovering/Resolving]

NARRATIVE: CASE EVENT DATE: 2017
